FAERS Safety Report 8046958-3 (Version None)
Quarter: 2012Q1

REPORT INFORMATION
  Report Type: 
  Country: None (occurrence: None)
  Receive Date: 20120116
  Receipt Date: 20120106
  Transmission Date: 20120608
  Serious: Yes (Hospitalization, Other)
  Sender: FDA-Public Use
  Company Number: US-BAYER-2011-100963

PATIENT
  Age: 19 Year
  Sex: Female
  Weight: 47.619 kg

DRUGS (3)
  1. YASMIN [Suspect]
     Indication: ACNE
  2. MOTRIN [Concomitant]
     Dosage: UNK
     Dates: start: 20000101
  3. YASMIN [Suspect]
     Indication: CONTRACEPTION
     Dosage: UNK
     Dates: start: 20030101, end: 20040101

REACTIONS (3)
  - GALLBLADDER DISORDER [None]
  - CHOLECYSTITIS CHRONIC [None]
  - PAIN [None]
